FAERS Safety Report 6934156-3 (Version None)
Quarter: 2010Q3

REPORT INFORMATION
  Report Type: 
  Country: None (occurrence: None)
  Receive Date: 20100820
  Receipt Date: 20100817
  Transmission Date: 20110219
  Serious: Yes (Other)
  Sender: FDA-Public Use
  Company Number: JP-EISAI INC.-E2090-01281-SPO-JP

PATIENT
  Age: 26 Year
  Sex: Male

DRUGS (3)
  1. EXCEGRAN [Suspect]
     Indication: EPILEPSY
     Dosage: UNKNOWN
     Route: 048
     Dates: end: 20100101
  2. VALPROIC ACID [Concomitant]
  3. TEGRETOL [Concomitant]

REACTIONS (1)
  - CALCULUS URINARY [None]
